FAERS Safety Report 12788488 (Version 3)
Quarter: 2017Q1

REPORT INFORMATION
  Report Type: Spontaneous
  Country: AU (occurrence: AU)
  Receive Date: 20160928
  Receipt Date: 20170327
  Transmission Date: 20170428
  Serious: Yes (Disabling, Other)
  Sender: FDA-Public Use
  Company Number: PHHY2016AU027269

PATIENT
  Sex: Female

DRUGS (1)
  1. COSENTYX [Suspect]
     Active Substance: SECUKINUMAB
     Indication: PSORIATIC ARTHROPATHY
     Route: 065

REACTIONS (4)
  - Oesophageal candidiasis [Recovered/Resolved]
  - Weight decreased [Unknown]
  - Muscle atrophy [Not Recovered/Not Resolved]
  - Product use issue [Unknown]
